FAERS Safety Report 18289210 (Version 1)
Quarter: 2020Q3

REPORT INFORMATION
  Report Type: Spontaneous
  Country: US (occurrence: US)
  Receive Date: 20200921
  Receipt Date: 20200921
  Transmission Date: 20201103
  Serious: Yes (Disabling)
  Sender: FDA-Public Use
  Company Number: None

PATIENT
  Age: 54 Year
  Sex: Female
  Weight: 81 kg

DRUGS (3)
  1. ?CIPROFLOXACIN 400MG IV [Suspect]
     Active Substance: CIPROFLOXACIN
     Indication: AUTOIMMUNE THYROIDITIS
     Dosage: ?
     Route: 060
     Dates: start: 20200213, end: 20200917
  2. SYNTHROID [Concomitant]
     Active Substance: LEVOTHYROXINE SODIUM
  3. FIBER WELL SUGAR FREE GUMMIES [Concomitant]

REACTIONS (8)
  - Arthralgia [None]
  - Fatigue [None]
  - Swelling face [None]
  - Insurance issue [None]
  - Weight increased [None]
  - Alopecia [None]
  - Pruritus [None]
  - Therapy interrupted [None]

NARRATIVE: CASE EVENT DATE: 20200213
